FAERS Safety Report 23489546 (Version 2)
Quarter: 2024Q4

REPORT INFORMATION
  Report Type: Report from Study
  Country: US (occurrence: US)
  Receive Date: 20240206
  Receipt Date: 20241018
  Transmission Date: 20250114
  Serious: No
  Sender: ROCHE
  Company Number: US-ROCHE-3326805

PATIENT
  Age: 49 Year
  Sex: Female
  Weight: 84.0 kg

DRUGS (2)
  1. XOLAIR [Suspect]
     Active Substance: OMALIZUMAB
     Indication: Idiopathic urticaria
     Dosage: STRENGTH: 150MG/ML
     Route: 058
     Dates: start: 20230308
  2. XOLAIR [Suspect]
     Active Substance: OMALIZUMAB
     Dosage: LAST DATE OF DRUG GIVEN WAS 15/FEB/2024
     Route: 058

REACTIONS (2)
  - Off label use [Unknown]
  - No adverse event [Unknown]

NARRATIVE: CASE EVENT DATE: 20230406
